FAERS Safety Report 23232614 (Version 1)
Quarter: 2023Q4

REPORT INFORMATION
  Report Type: Spontaneous
  Country: MY (occurrence: MY)
  Receive Date: 20231128
  Receipt Date: 20231128
  Transmission Date: 20240110
  Serious: Yes (Other)
  Sender: FDA-Public Use
  Company Number: MY-MLMSERVICE-20230407-4205384-1

PATIENT
  Age: 26 Year
  Sex: Female

DRUGS (8)
  1. DOXORUBICIN [Suspect]
     Active Substance: DOXORUBICIN
     Indication: B-cell lymphoma stage II
  2. DOXORUBICIN [Suspect]
     Active Substance: DOXORUBICIN
     Indication: Nasopharyngeal cancer
  3. RITUXIMAB [Suspect]
     Active Substance: RITUXIMAB
     Indication: B-cell lymphoma stage II
  4. RITUXIMAB [Suspect]
     Active Substance: RITUXIMAB
     Indication: Nasopharyngeal cancer
  5. VINCRISTINE [Suspect]
     Active Substance: VINCRISTINE
     Indication: B-cell lymphoma stage II
  6. VINCRISTINE [Suspect]
     Active Substance: VINCRISTINE
     Indication: Nasopharyngeal cancer
  7. CYCLOPHOSPHAMIDE [Suspect]
     Active Substance: CYCLOPHOSPHAMIDE
     Indication: B-cell lymphoma stage II
  8. CYCLOPHOSPHAMIDE [Suspect]
     Active Substance: CYCLOPHOSPHAMIDE
     Indication: Nasopharyngeal cancer

REACTIONS (1)
  - Neutropenic sepsis [Unknown]
